FAERS Safety Report 5331806-2 (Version None)
Quarter: 2007Q2

REPORT INFORMATION
  Report Type: 
  Country: None (occurrence: None)
  Receive Date: 20070517
  Receipt Date: 20070504
  Transmission Date: 20071010
  Serious: Yes (Other)
  Sender: FDA-Public Use
  Company Number: 2003-106101-NL

PATIENT
  Age: 67 Year
  Sex: Male

DRUGS (17)
  1. MIRTAZAPINE [Suspect]
     Indication: DEPRESSION
     Dosage: 15 MG DAILY, INCREASED
  2. MIRTAZAPINE [Suspect]
     Indication: DEPRESSION
     Dosage: 30 MG DAILY, DECREASED
  3. MIRTAZAPINE [Suspect]
     Indication: DEPRESSION
     Dosage: 15 MG DAILY, INTERRUPTED FOR A FEW DAYS
  4. MIRTAZAPINE [Suspect]
     Indication: DEPRESSION
     Dosage: 15 MG DAILY, RESTARTED
  5. GABAPENTIN [Suspect]
     Indication: PHANTOM PAIN
     Dosage: 300 MG QD, HS
  6. LINEZOLID [Suspect]
     Indication: OSTEOMYELITIS
     Dosage: 600 MG BID
  7. INSULIN [Concomitant]
  8. EPOETIN [Concomitant]
  9. PANTOPRAZOLE SODIUM [Concomitant]
  10. AMLODIPINE [Concomitant]
  11. FERROUS SULFATE [Concomitant]
  12. METOPROLOL - SLOW RELEASE [Concomitant]
  13. VALSARTAN [Concomitant]
  14. POTASSIUM CHLORIDE [Concomitant]
  15. FEXOFENADINE [Concomitant]
  16. TORSEMIDE [Concomitant]
  17. LORAZEPAM [Concomitant]

REACTIONS (13)
  - ANXIETY [None]
  - CONDITION AGGRAVATED [None]
  - CONFUSIONAL STATE [None]
  - DELIRIUM [None]
  - DEPRESSION [None]
  - DRUG INTERACTION [None]
  - DRUG LEVEL INCREASED [None]
  - HALLUCINATION, VISUAL [None]
  - MENTAL STATUS CHANGES [None]
  - PHANTOM PAIN [None]
  - REFUSAL OF TREATMENT BY PATIENT [None]
  - SEDATION [None]
  - SEROTONIN SYNDROME [None]
